FAERS Safety Report 11520260 (Version 1)
Quarter: 2015Q3

REPORT INFORMATION
  Report Type: Spontaneous
  Country: US (occurrence: US)
  Receive Date: 20150918
  Receipt Date: 20150918
  Transmission Date: 20151125
  Serious: No
  Sender: FDA-Public Use
  Company Number: US-RB-074675-15

PATIENT

DRUGS (2)
  1. MUCINEX SINUS-MAX PRESSURE AND PAIN [Suspect]
     Active Substance: ACETAMINOPHEN\GUAIFENESIN\PHENYLEPHRINE HYDROCHLORIDE
     Indication: PRODUCT USED FOR UNKNOWN INDICATION
     Dosage: 2DF. PATIENT TOOK FINAL DOSE ON 23/JAN/2015, 5:00 AM.,FREQUENCY UNK
     Route: 065
  2. MUCINEX [Suspect]
     Active Substance: GUAIFENESIN
     Indication: PRODUCT USED FOR UNKNOWN INDICATION
     Dosage: 600MG. PATIENT TOOK DOSE AS PER THE LABEL AND TOOK FINAL DOSE ON 23/JAN/2015, 5:00 AM.,BID
     Route: 065
     Dates: start: 20150122

REACTIONS (1)
  - Drug ineffective [Not Recovered/Not Resolved]
